FAERS Safety Report 24927998 (Version 1)
Quarter: 2025Q1

REPORT INFORMATION
  Report Type: Spontaneous
  Country: US (occurrence: None)
  Receive Date: 20250204
  Receipt Date: 20250204
  Transmission Date: 20250409
  Serious: Yes (Hospitalization, Other)
  Sender: FDA-CTU
  Company Number: None

PATIENT
  Age: 57 Year
  Sex: Female
  Weight: 106.65 kg

DRUGS (1)
  1. GAMUNEX-C [Suspect]
     Active Substance: HUMAN IMMUNOGLOBULIN G
     Indication: Polyneuropathy
     Route: 042
     Dates: start: 20250203, end: 20250203

REACTIONS (6)
  - Rash papular [None]
  - Pruritus [None]
  - Urticaria [None]
  - Chills [None]
  - Anxiety [None]
  - Tongue disorder [None]

NARRATIVE: CASE EVENT DATE: 20250203
